FAERS Safety Report 8796741 (Version 2)
Quarter: 2012Q4

REPORT INFORMATION
  Report Type: Report from Study
  Country: CA (occurrence: CA)
  Receive Date: 20120917
  Receipt Date: 20121123
  Transmission Date: 20130627
  Serious: Yes (Death, Hospitalization)
  Sender: FDA-Public Use
  Company Number: CA-BRISTOL-MYERS SQUIBB COMPANY-16440539

PATIENT
  Age: 70 Year
  Sex: Male

DRUGS (4)
  1. IPILIMUMAB [Suspect]
     Indication: MALIGNANT MELANOMA
     Dosage: 20Dec11-20Dec11(305mg)
10Jan12-10Jan12(312mg)
31Jan12-31Jan12(315mg)
22Feb12-22Feb12(305mg)
     Route: 042
     Dates: start: 20111220, end: 20120222
  2. ATENOLOL [Concomitant]
     Route: 048
     Dates: start: 20100514
  3. ALLOPURINOL [Concomitant]
     Route: 048
     Dates: start: 20100514
  4. COZAAR [Concomitant]
     Dosage: 1df=100/12.5 units not specified
     Route: 048
     Dates: start: 20100514

REACTIONS (2)
  - Sepsis [Fatal]
  - Colitis [Recovered/Resolved with Sequelae]
